FAERS Safety Report 24370477 (Version 1)
Quarter: 2024Q3

REPORT INFORMATION
  Report Type: Spontaneous
  Country: GB (occurrence: GB)
  Receive Date: 20240927
  Receipt Date: 20240927
  Transmission Date: 20241017
  Serious: Yes (Congenital Anomaly)
  Sender: PROVEPHARM
  Company Number: GB-Provepharm-2162122

PATIENT
  Age: 1 Day

DRUGS (6)
  1. PROVAYBLUE [Suspect]
     Active Substance: METHYLENE BLUE
  2. ISOPROPYL NITRATE [Suspect]
     Active Substance: ISOPROPYL NITRATE
  3. ALPRAZOLAM [Suspect]
     Active Substance: ALPRAZOLAM
  4. DIAZEPAM [Suspect]
     Active Substance: DIAZEPAM
  5. QUETIAPINE [Suspect]
     Active Substance: QUETIAPINE
  6. LAMOTRIGINE [Suspect]
     Active Substance: LAMOTRIGINE

REACTIONS (1)
  - Small for dates baby [Unknown]
